FAERS Safety Report 5306296-6 (Version None)
Quarter: 2007Q2

REPORT INFORMATION
  Report Type: 
  Country: None (occurrence: None)
  Receive Date: 20070424
  Receipt Date: 20070412
  Transmission Date: 20071010
  Serious: Yes (Hospitalization, Other)
  Sender: FDA-Public Use
  Company Number: GB-ELI_LILLY_AND_COMPANY-GB200605006068

PATIENT
  Age: 16 Year
  Sex: Male
  Weight: 64.6 kg

DRUGS (2)
  1. STRATTERA [Suspect]
     Indication: ATTENTION DEFICIT/HYPERACTIVITY DISORDER
     Dosage: 75 MG, DAILY (1/D)
     Route: 048
     Dates: start: 20041001
  2. STRATTERA [Suspect]
     Dosage: 25 MG, DAILY (1/D)
     Route: 055
     Dates: start: 20060501

REACTIONS (4)
  - INTENTIONAL DRUG MISUSE [None]
  - LOSS OF CONSCIOUSNESS [None]
  - NAUSEA [None]
  - SUPRAVENTRICULAR TACHYCARDIA [None]
